FAERS Safety Report 10210451 (Version 3)
Quarter: 2014Q2

REPORT INFORMATION
  Report Type: Report from Study
  Country: AU (occurrence: AU)
  Receive Date: 20140602
  Receipt Date: 20140609
  Transmission Date: 20141212
  Serious: Yes (Other)
  Sender: FDA-Public Use
  Company Number: AU-009507513-1405AUS014499

PATIENT
  Age: 85 Year
  Sex: Male
  Weight: 78.7 kg

DRUGS (8)
  1. SIMVASTATIN [Suspect]
     Indication: ACUTE CORONARY SYNDROME
     Dosage: 40 MG, QD
     Route: 048
     Dates: start: 20060823
  2. DUODART [Concomitant]
     Dosage: TOTAL DAILY DOSAGE:500MCG/ 400MCG DAILY
     Route: 048
     Dates: start: 20130911
  3. ASPIRIN [Concomitant]
     Dosage: TOTAL DAILY DOSAGE: 100 MG
     Route: 048
     Dates: start: 20060820
  4. ZOTON [Concomitant]
     Dosage: TOTAL DAILY DOSAGE:30 MG DAILY
     Dates: start: 20060820
  5. OMEGA-3 MARINE TRIGLYCERIDES [Concomitant]
     Dosage: TOTAL DAILY DOSAGE: 3 G DAILY
     Route: 048
     Dates: start: 20070813
  6. METOPROLOL [Concomitant]
     Dosage: TOTAL DAILY DOSAGE:50 MG
     Route: 048
     Dates: start: 20060822
  7. CLOPIDOGREL [Concomitant]
     Dosage: TOTAL DAILY DOSAGE:75 MG
     Route: 048
     Dates: start: 20060820
  8. VIAGRA [Concomitant]
     Dosage: 100 MG, QW
     Route: 048
     Dates: start: 20071215

REACTIONS (1)
  - Squamous cell carcinoma [Recovered/Resolved]
